FAERS Safety Report 12210968 (Version 1)
Quarter: 2016Q1

REPORT INFORMATION
  Report Type: Spontaneous
  Country: US (occurrence: US)
  Receive Date: 20160325
  Receipt Date: 20160325
  Transmission Date: 20160526
  Serious: Yes (Other)
  Sender: FDA-Public Use
  Company Number: US-MEDA-2016030090

PATIENT
  Age: 59 Year
  Sex: Female
  Weight: 59 kg

DRUGS (2)
  1. IMITREX [Concomitant]
     Active Substance: SUMATRIPTAN SUCCINATE
     Indication: MIGRAINE
     Route: 048
  2. DYMISTA [Suspect]
     Active Substance: AZELASTINE HYDROCHLORIDE\FLUTICASONE PROPIONATE
     Indication: SEASONAL ALLERGY
     Dates: start: 20160311, end: 20160314

REACTIONS (2)
  - Headache [Recovered/Resolved]
  - CSF red blood cell count positive [Unknown]

NARRATIVE: CASE EVENT DATE: 20160313
